FAERS Safety Report 19862868 (Version 1)
Quarter: 2021Q3

REPORT INFORMATION
  Report Type: Spontaneous
  Country: DE (occurrence: CN)
  Receive Date: 20210921
  Receipt Date: 20210921
  Transmission Date: 20211014
  Serious: Yes (Hospitalization)
  Sender: FDA-Public Use
  Company Number: CN-ELI_LILLY_AND_COMPANY-CN202109007311

PATIENT
  Age: 51 Year
  Sex: Female
  Weight: 47 kg

DRUGS (5)
  1. FLUOROURACIL. [Suspect]
     Active Substance: FLUOROURACIL
     Indication: RECTAL NEOPLASM
     Dosage: 0.5 G, UNKNOWN (WITH 0.9% SODIUM CHLORIDE INJECTION 100 ML INTRAVENOUS DRIP QD)
     Route: 040
     Dates: start: 20210820, end: 20210820
  2. CALCIUM FOLINATE [Suspect]
     Active Substance: LEUCOVORIN CALCIUM
     Indication: RECTAL NEOPLASM
     Dosage: 0.55 G, UNKNOWN (WITH 0.9% SODIUM CHLORIDE INJECTION 250 ML INTRAVENOUS DRIP ONCE)
     Route: 041
     Dates: start: 20210820, end: 20210820
  3. FLUOROURACIL. [Suspect]
     Active Substance: FLUOROURACIL
     Dosage: 1.688 G, UNKNOWN (WITH 0.9% SODIUM CHLORIDE INJECTION 50 ML INTRAVENOUS DRIP ONCE)
     Route: 041
     Dates: start: 20210820, end: 20210821
  4. ERBITUX [Suspect]
     Active Substance: CETUXIMAB
     Indication: RECTAL NEOPLASM
     Dosage: 690 MG, UNKNOWN (WITH 0.9% SODIUM CHLORIDE INJECTION 250 ML INTRAVENOUS DRIP ONCE)
     Route: 041
     Dates: start: 20210820
  5. OXALIPLATIN. [Suspect]
     Active Substance: OXALIPLATIN
     Indication: RECTAL NEOPLASM
     Dosage: 117 MG, UNKNOWN (GLUCOSE INJECTION 250 ML INTRAVENOUS DRIP ONCE)
     Route: 041
     Dates: start: 20210820, end: 20210820

REACTIONS (1)
  - Granulocytopenia [Recovering/Resolving]

NARRATIVE: CASE EVENT DATE: 20210905
